FAERS Safety Report 6635464-6 (Version None)
Quarter: 2010Q1

REPORT INFORMATION
  Report Type: 
  Country: None (occurrence: None)
  Receive Date: 20100315
  Receipt Date: 20090714
  Transmission Date: 20100710
  Serious: Yes (Other)
  Sender: FDA-Public Use
  Company Number: US-ABBOTT-09P-163-0585746-00

PATIENT
  Sex: Male
  Weight: 45.854 kg

DRUGS (3)
  1. DEPAKOTE [Suspect]
     Indication: BIPOLAR DISORDER
     Route: 048
     Dates: start: 20080101
  2. DEPAKOTE [Suspect]
     Route: 048
     Dates: start: 20080501, end: 20080501
  3. CARNITOR [Concomitant]
     Indication: DRUG USE FOR UNKNOWN INDICATION

REACTIONS (9)
  - DIZZINESS [None]
  - DRUG INTOLERANCE [None]
  - HYPERAMMONAEMIA [None]
  - LETHARGY [None]
  - MOOD ALTERED [None]
  - SYNCOPE [None]
  - VOMITING [None]
  - WHITE BLOOD CELL COUNT DECREASED [None]
  - YAWNING [None]
